FAERS Safety Report 5806603-1 (Version None)
Quarter: 2008Q3

REPORT INFORMATION
  Report Type: 
  Country: None (occurrence: None)
  Receive Date: 20080710
  Receipt Date: 20080701
  Transmission Date: 20090109
  Serious: Yes (Other)
  Sender: FDA-Public Use
  Company Number: PHHY2008GB13023

PATIENT

DRUGS (4)
  1. TEGRETOL [Suspect]
  2. BACLOFEN [Suspect]
     Indication: TRIGEMINAL NEURALGIA
     Dosage: 10 MG, TID
  3. BACLOFEN [Suspect]
     Dosage: 2.5 MG, TID
  4. VALIUM [Concomitant]
     Dosage: 5 MG, TID

REACTIONS (9)
  - CHROMATURIA [None]
  - DRUG INTERACTION [None]
  - DYSGEUSIA [None]
  - FATIGUE [None]
  - MALAISE [None]
  - MYALGIA [None]
  - PAIN [None]
  - TREMOR [None]
  - WEIGHT DECREASED [None]
